FAERS Safety Report 9754331 (Version 1)
Quarter: 2013Q4

REPORT INFORMATION
  Report Type: Spontaneous
  Country: US (occurrence: US)
  Receive Date: 20131213
  Receipt Date: 20131213
  Transmission Date: 20140711
  Serious: Yes (Hospitalization, Other)
  Sender: FDA-Public Use
  Company Number: PHHY2013US143465

PATIENT
  Age: 7 Week
  Sex: Female

DRUGS (8)
  1. OXCARBAZEPINE [Suspect]
     Indication: CONVULSION
  2. TOPIRAMATE [Suspect]
     Indication: CONVULSION
  3. CLONAZEPAM [Suspect]
     Indication: CONVULSION
  4. CLOBAZAM [Suspect]
     Indication: CONVULSION
  5. ZONISAMIDE [Suspect]
     Indication: CONVULSION
  6. VIGABATRIN [Suspect]
     Indication: CONVULSION
  7. PYRIDOXINE [Suspect]
     Indication: CONVULSION
  8. RUFINAMIDE [Suspect]
     Indication: CONVULSION

REACTIONS (8)
  - Status epilepticus [Unknown]
  - Convulsion [Unknown]
  - Clonus [Unknown]
  - Muscle twitching [Unknown]
  - Hypotonia [Unknown]
  - Eye disorder [Unknown]
  - Neonatal hypoxia [Unknown]
  - Drug ineffective [Unknown]
